FAERS Safety Report 4546214-1 (Version None)
Quarter: 2005Q1

REPORT INFORMATION
  Report Type: 
  Country: None (occurrence: None)
  Receive Date: 20050103
  Receipt Date: 20041217
  Transmission Date: 20050727
  Serious: Yes (Hospitalization)
  Sender: FDA-Public Use
  Company Number: 2004UW25810

PATIENT
  Age: 90 Year
  Sex: Female
  Weight: 59.42 kg

DRUGS (7)
  1. CRESTOR [Suspect]
     Dosage: 10 MG PO
     Route: 048
     Dates: start: 20031001, end: 20041206
  2. LASIX [Concomitant]
  3. MICARDIS [Concomitant]
  4. PACERONE [Concomitant]
  5. ISORDIL [Concomitant]
  6. ASPIRIN [Concomitant]
  7. IMDUR [Concomitant]

REACTIONS (7)
  - ATRIAL FIBRILLATION [None]
  - CARDIAC FAILURE CONGESTIVE [None]
  - HYPERTENSIVE NEPHROPATHY [None]
  - PLEURAL EFFUSION [None]
  - PULMONARY OEDEMA [None]
  - RENAL FAILURE ACUTE [None]
  - RENAL VESSEL DISORDER [None]
